FAERS Safety Report 9468963 (Version 7)
Quarter: 2013Q4

REPORT INFORMATION
  Report Type: Report from Study
  Country: US (occurrence: US)
  Receive Date: 20130821
  Receipt Date: 20131218
  Transmission Date: 20140711
  Serious: No
  Sender: FDA-Public Use
  Company Number: US-VERTEX PHARMACEUTICALS INC-2013-008910

PATIENT
  Age: 55 Year
  Sex: Female
  Weight: 73 kg

DRUGS (6)
  1. VX-950 (TELAPREVIR) [Suspect]
     Indication: HEPATITIS C
     Dosage: 750 MG, TID
     Route: 048
     Dates: start: 20130727, end: 201309
  2. RIBAVIRIN [Suspect]
     Indication: HEPATITIS C
     Dosage: 1000 MG, QD
     Route: 048
     Dates: start: 20130727, end: 201310
  3. PEGASYS [Suspect]
     Indication: HEPATITIS C
     Dosage: 180 ?G, QW
     Route: 058
     Dates: start: 20130727, end: 201310
  4. EFFEXOR [Concomitant]
     Indication: BIPOLAR DISORDER
     Dosage: 137.5 MG, UNK
  5. EFFEXOR [Concomitant]
     Indication: DEPRESSION
     Dosage: 175 UNK, UNK
     Dates: start: 20131205
  6. LITHIUM [Concomitant]
     Indication: BIPOLAR DISORDER
     Dosage: 1 DF, TID

REACTIONS (24)
  - Dehydration [Recovered/Resolved]
  - Incontinence [Recovered/Resolved]
  - Vision blurred [Unknown]
  - Weight increased [Recovered/Resolved]
  - Faeces discoloured [Not Recovered/Not Resolved]
  - Increased appetite [Not Recovered/Not Resolved]
  - Rectal prolapse [Recovered/Resolved]
  - Gait disturbance [Not Recovered/Not Resolved]
  - Decreased appetite [Recovered/Resolved]
  - Dyspepsia [Not Recovered/Not Resolved]
  - Weight decreased [Recovered/Resolved]
  - Depression [Recovered/Resolved]
  - Injection site rash [Not Recovered/Not Resolved]
  - Fatigue [Not Recovered/Not Resolved]
  - Asthenia [Not Recovered/Not Resolved]
  - Rash generalised [Recovered/Resolved]
  - Anaemia [Not Recovered/Not Resolved]
  - Nausea [Recovered/Resolved]
  - Diarrhoea [Recovered/Resolved]
  - Anorectal discomfort [Recovered/Resolved]
  - Proctalgia [Recovered/Resolved]
  - Anal pruritus [Not Recovered/Not Resolved]
  - Pruritus [Not Recovered/Not Resolved]
  - Red blood cell count decreased [Unknown]
